FAERS Safety Report 15850272 (Version 1)
Quarter: 2019Q1

REPORT INFORMATION
  Report Type: Spontaneous
  Country: US (occurrence: US)
  Receive Date: 20190121
  Receipt Date: 20190121
  Transmission Date: 20190417
  Serious: No
  Sender: FDA-Public Use
  Company Number: US-PFIZER INC-2019021532

PATIENT
  Age: 76 Year
  Sex: Male

DRUGS (3)
  1. VORINOSTAT [Concomitant]
     Active Substance: VORINOSTAT
     Dosage: UNK [3/M2 ON DAYS 1, 4, AND 7]
  2. MYLOTARG [Suspect]
     Active Substance: GEMTUZUMAB OZOGAMICIN
     Indication: ACUTE MYELOID LEUKAEMIA
     Dosage: UNK [ON DAYS 1, 4 AND 7 AND THE DOSE WAS 3/M2]
  3. AZATADINE [Concomitant]
     Active Substance: AZATADINE
     Dosage: UNK [3/M2 ON DAYS 1, 4, AND 7]

REACTIONS (1)
  - Neoplasm progression [Unknown]
